FAERS Safety Report 7231252-0 (Version None)
Quarter: 2011Q1

REPORT INFORMATION
  Report Type: 
  Country: None (occurrence: None)
  Receive Date: 20110118
  Receipt Date: 20110110
  Transmission Date: 20110831
  Serious: Yes (Other)
  Sender: FDA-Public Use
  Company Number: US-JNJFOC-20100803976

PATIENT
  Sex: Female
  Weight: 67.13 kg

DRUGS (7)
  1. PREDNISONE [Concomitant]
  2. REMICADE [Suspect]
     Route: 042
  3. REMICADE [Suspect]
     Route: 042
  4. REMICADE [Suspect]
     Indication: ANKYLOSING SPONDYLITIS
     Route: 042
  5. ZYRTEC [Concomitant]
     Dosage: ADMINISTERED FOR ONLY 10 DAYS
  6. THYROID [Concomitant]
  7. HYDROCODONE [Concomitant]

REACTIONS (22)
  - DIZZINESS [None]
  - HYPERSENSITIVITY [None]
  - RED BLOOD CELL COUNT INCREASED [None]
  - ANTINUCLEAR ANTIBODY POSITIVE [None]
  - BLOOD PRESSURE DECREASED [None]
  - WHITE BLOOD CELL COUNT INCREASED [None]
  - ADVERSE EVENT [None]
  - HYPERHIDROSIS [None]
  - INFUSION RELATED REACTION [None]
  - PAIN [None]
  - PARAESTHESIA [None]
  - PYREXIA [None]
  - CHEST PAIN [None]
  - SWOLLEN TONGUE [None]
  - NERVE BLOCK [None]
  - SINUS BRADYCARDIA [None]
  - LETHARGY [None]
  - EPISTAXIS [None]
  - UPPER RESPIRATORY TRACT INFECTION [None]
  - ASTHENIA [None]
  - NAUSEA [None]
  - FATIGUE [None]
